FAERS Safety Report 8301987-7 (Version None)
Quarter: 2012Q2

REPORT INFORMATION
  Report Type: 
  Country: None (occurrence: None)
  Receive Date: 20120420
  Receipt Date: 20120410
  Transmission Date: 20120825
  Serious: Yes (Hospitalization)
  Sender: FDA-Public Use
  Company Number: ES-JNJFOC-20071204642

PATIENT
  Sex: Female
  Weight: 70.6 kg

DRUGS (58)
  1. GOLIMUMAB [Suspect]
     Dosage: WEEK 52
     Route: 058
     Dates: start: 20080128
  2. METHOTREXATE [Suspect]
     Dosage: WEEK 15, 8 CAPSULES
     Route: 048
     Dates: start: 20070220
  3. METHOTREXATE [Suspect]
     Dosage: WEEK 0, 4 CAPSULES
     Route: 048
     Dates: start: 20061107
  4. METHOTREXATE [Suspect]
     Dosage: WEEK 41, 4 CAPSULES
     Route: 048
     Dates: start: 20070821
  5. METHOTREXATE [Suspect]
     Dosage: WEEK 46, 4 CAPSULES
     Route: 048
     Dates: start: 20070925
  6. METHOTREXATE [Suspect]
     Dosage: WEEK 47, 4 CAPSULES
     Route: 048
     Dates: start: 20071002
  7. METHOTREXATE [Suspect]
     Dosage: WEEK 55, 4 CAPSULES
     Route: 048
     Dates: start: 20071127
  8. OMEPRAZOLE [Concomitant]
     Route: 048
     Dates: start: 20070525
  9. NOLOTIL [Concomitant]
     Route: 048
     Dates: start: 20070530
  10. METHOTREXATE [Suspect]
     Dosage: WEEK 45, 4 CAPSULES
     Route: 048
     Dates: start: 20070918
  11. METHOTREXATE [Suspect]
     Dosage: WEEK 50, 4 CAPSULES
     Route: 048
     Dates: start: 20071023
  12. METHOTREXATE [Suspect]
     Dosage: WEEK 53, 4 CAPSULES
     Route: 048
     Dates: start: 20071113
  13. FLUTICASONE FUROATE [Concomitant]
     Route: 055
     Dates: start: 20070525
  14. BUPRENORPHINE [Concomitant]
     Route: 062
     Dates: start: 20070526
  15. GOLIMUMAB [Suspect]
     Indication: RHEUMATOID ARTHRITIS
     Dosage: WEEK 56
     Route: 058
     Dates: start: 20071204
  16. GOLIMUMAB [Suspect]
     Route: 058
     Dates: start: 20071105
  17. METHOTREXATE [Suspect]
     Indication: RHEUMATOID ARTHRITIS
     Dosage: WEEK 6, 6 CAPSULES
     Route: 048
     Dates: start: 20061219
  18. METHOTREXATE [Suspect]
     Dosage: WEEK 33, 4 CAPSULES
     Route: 048
     Dates: start: 20070627
  19. METHOTREXATE [Suspect]
     Dosage: WEEK 39, 4 CAPSULES
     Route: 048
     Dates: start: 20070807
  20. METHOTREXATE [Suspect]
     Dosage: WEEK 48, 4 CAPSULES
     Route: 048
     Dates: start: 20071009
  21. METHOTREXATE [Suspect]
     Dosage: WEEK 19, 8 CAPSULES
     Route: 048
     Dates: start: 20070320
  22. METHOTREXATE [Suspect]
     Dosage: WEEK 38, 4 CAPSULES
     Route: 048
     Dates: start: 20070731
  23. METHOTREXATE [Suspect]
     Dosage: WEEK 40, 4 CAPSULES
     Route: 048
     Dates: start: 20070814
  24. METHOTREXATE [Suspect]
     Dosage: WEEK 44, 4 CAPSULES
     Route: 048
     Dates: start: 20070911
  25. METHOTREXATE [Suspect]
     Dosage: WEEK 5, 6 CAPSULES
     Route: 048
     Dates: start: 20061212
  26. METHOTREXATE [Suspect]
     Dosage: WEEK 12, 8 CAPSULES
     Route: 048
     Dates: start: 20070130
  27. METHOTREXATE [Suspect]
     Dosage: WEEK 17, 8 CAPSULES
     Route: 048
     Dates: start: 20070306
  28. METHOTREXATE [Suspect]
     Dosage: WEEK 24, 8 CAPSULES
     Route: 048
     Dates: start: 20070424
  29. METHOTREXATE [Suspect]
     Dosage: WEEK 25, 8 CAPSULES
     Route: 048
     Dates: start: 20070501
  30. METHOTREXATE [Suspect]
     Dosage: WEEK 24, 4 CAPSULES
     Route: 048
     Dates: start: 20070704
  31. METHOTREXATE [Suspect]
     Dosage: WEEK 35, 4 CAPSULES
     Route: 048
     Dates: start: 20070711
  32. METHOTREXATE [Suspect]
     Dosage: WEEK 35, 4 CAPSULES
     Route: 048
     Dates: start: 20070717
  33. METHOTREXATE [Suspect]
     Dosage: WEEK 49, 4 CAPSULES
     Route: 048
     Dates: start: 20071016
  34. METHOTREXATE [Suspect]
     Dosage: WEEK 52, 4 CAPSULES
     Route: 048
     Dates: start: 20071105
  35. METHOTREXATE [Suspect]
     Dosage: WEEK 54, 4 CAPSULES
     Route: 048
     Dates: start: 20071120
  36. METHOTREXATE [Suspect]
     Dosage: WEEK 2, 4 CAPSULES
     Route: 048
     Dates: start: 20061121
  37. METHOTREXATE [Suspect]
     Dosage: WEEK 8, 8 CAPSULES
     Route: 048
     Dates: start: 20070103
  38. METHOTREXATE [Suspect]
     Dosage: WEEK 14, 8 CAPSULES
     Route: 048
     Dates: start: 20070213
  39. METHOTREXATE [Suspect]
     Dosage: WEEK 20, 8 CAPSULES
     Route: 048
     Dates: start: 20070327
  40. METHOTREXATE [Suspect]
     Dosage: WEEK 51, 4 CAPSULES
     Route: 048
     Dates: start: 20071030
  41. METHOTREXATE [Suspect]
     Dosage: WEEK 4, 6 CAPSULES
     Route: 048
     Dates: start: 20061205
  42. METHOTREXATE [Suspect]
     Dosage: WEEK 1, 4 CAPSULES
     Route: 048
     Dates: start: 20061114
  43. SALIDUR [Concomitant]
     Route: 048
     Dates: start: 20070530
  44. NAPROXEN [Concomitant]
     Route: 048
     Dates: start: 20070531
  45. ISONIAZID [Concomitant]
     Route: 048
     Dates: start: 20070531
  46. METHOTREXATE [Suspect]
     Dosage: WEEK 18, 8 CAPSULES
     Route: 048
     Dates: start: 20070313
  47. SALMETEROL [Concomitant]
     Route: 055
     Dates: start: 20070525
  48. SPIRIVA [Concomitant]
     Route: 055
  49. FORMOTEROL FUMARATE [Concomitant]
     Route: 055
  50. METHOTREXATE [Suspect]
     Dosage: WEEK 7, 6 CAPSULES
     Route: 048
     Dates: start: 20061226
  51. METHOTREXATE [Suspect]
     Dosage: WEEK 9, 8 CAPSULES
     Route: 048
     Dates: start: 20070110
  52. METHOTREXATE [Suspect]
     Dosage: WEEK 13, 8 CAPSULES
     Route: 048
     Dates: start: 20070206
  53. METHOTREXATE [Suspect]
     Dosage: WEEK 16, 8 CAPSULES
     Route: 048
     Dates: start: 20070227
  54. METHOTREXATE [Suspect]
     Dosage: WEEK 32, 4 CAPSULES
     Route: 048
     Dates: start: 20070620
  55. METHOTREXATE [Suspect]
     Dosage: WEEK 56, 4 CAPSULES
     Route: 048
     Dates: start: 20071204
  56. METHOTREXATE [Suspect]
     Dosage: WEEK 3, 4 CAPSULES
     Route: 048
     Dates: start: 20061128
  57. METHOTREXATE [Suspect]
     Dosage: WEEK 37, 4 CAPSULES
     Route: 048
     Dates: start: 20070724
  58. FOLIC ACID [Concomitant]
     Route: 048
     Dates: start: 20070531

REACTIONS (1)
  - UPPER RESPIRATORY TRACT INFECTION [None]
